FAERS Safety Report 21520434 (Version 2)
Quarter: 2023Q1

REPORT INFORMATION
  Report Type: Spontaneous
  Country: HR (occurrence: HR)
  Receive Date: 20221028
  Receipt Date: 20230228
  Transmission Date: 20230417
  Serious: Yes (Hospitalization, Other)
  Sender: FDA-Public Use
  Company Number: HR-009507513-2210HRV006891

PATIENT
  Age: 68 Year
  Sex: Male

DRUGS (9)
  1. PEMBROLIZUMAB [Suspect]
     Active Substance: PEMBROLIZUMAB
     Indication: Non-small cell lung cancer metastatic
     Dosage: 200 MILLIGRAM, Q3W
     Route: 042
     Dates: start: 20210701
  2. PEMBROLIZUMAB [Suspect]
     Active Substance: PEMBROLIZUMAB
     Dosage: 200 MILLIGRAM, Q3W
     Route: 042
     Dates: start: 20210722
  3. PEMBROLIZUMAB [Suspect]
     Active Substance: PEMBROLIZUMAB
     Dosage: 200 MILLIGRAM
     Route: 042
     Dates: start: 20210812, end: 202210
  4. PANTOPRAZOLE [Concomitant]
     Active Substance: PANTOPRAZOLE
     Dosage: 40 MILLIGRAM, 2X1
  5. METFORMIN [Concomitant]
     Active Substance: METFORMIN HYDROCHLORIDE
     Dosage: 1000 MILLIGRAM, 2X1
  6. GLIQUIDONE [Concomitant]
     Active Substance: GLIQUIDONE
     Dosage: 30 MILLIGRAM, 2 X1
  7. JARDIANCE [Concomitant]
     Active Substance: EMPAGLIFLOZIN
  8. BISOPROLOL FUMARATE [Concomitant]
     Active Substance: BISOPROLOL FUMARATE
     Dosage: 2.5 MILLIGRAM
  9. FOSTER [Concomitant]
     Active Substance: BECLOMETHASONE\FORMOTEROL

REACTIONS (21)
  - Muscular weakness [Unknown]
  - Arrhythmia [Unknown]
  - Malaise [Unknown]
  - Restlessness [Unknown]
  - Tachycardia [Unknown]
  - Adrenal insufficiency [Unknown]
  - Pneumonitis [Unknown]
  - Lividity [Unknown]
  - Microangiopathy [Unknown]
  - Blood thyroid stimulating hormone abnormal [Unknown]
  - Blood corticotrophin abnormal [Unknown]
  - Blood parathyroid hormone abnormal [Unknown]
  - Insulin C-peptide abnormal [Unknown]
  - Adrenal disorder [Unknown]
  - Peripheral swelling [Unknown]
  - Erythema [Unknown]
  - Vitiligo [Unknown]
  - Arthralgia [Unknown]
  - Cough [Unknown]
  - Dyspnoea [Unknown]
  - Diarrhoea [Unknown]

NARRATIVE: CASE EVENT DATE: 20210101
